FAERS Safety Report 23825711 (Version 3)
Quarter: 2024Q3

REPORT INFORMATION
  Report Type: Spontaneous
  Country: US (occurrence: US)
  Receive Date: 20240507
  Receipt Date: 20240731
  Transmission Date: 20241016
  Serious: Yes (Other)
  Sender: PFIZER
  Company Number: US-PFIZER INC-PV202400058758

PATIENT
  Age: 47 Year
  Sex: Female

DRUGS (2)
  1. IBRANCE [Suspect]
     Active Substance: PALBOCICLIB
     Dosage: UNK
  2. LUPRON [Concomitant]
     Active Substance: LEUPROLIDE ACETATE

REACTIONS (9)
  - Nephrolithiasis [Unknown]
  - Product dose omission in error [Unknown]
  - Diarrhoea [Unknown]
  - Intermenstrual bleeding [Recovered/Resolved]
  - Nausea [Unknown]
  - Breast pain [Unknown]
  - Constipation [Recovering/Resolving]
  - Vomiting [Unknown]
  - Illness [Unknown]
